FAERS Safety Report 6241626-2 (Version None)
Quarter: 2009Q2

REPORT INFORMATION
  Report Type: 
  Country: None (occurrence: None)
  Receive Date: 20090623
  Receipt Date: 20040806
  Transmission Date: 20091009
  Serious: Yes (Life-Threatening, Hospitalization, Other)
  Sender: FDA-Public Use
  Company Number: GB-ROCHE-376788

PATIENT
  Sex: Male
  Weight: 60 kg

DRUGS (18)
  1. MYCOPHENOLATE MOFETIL [Suspect]
     Route: 048
     Dates: start: 20040804, end: 20040824
  2. CYCLOSPORINE [Suspect]
     Dosage: DRUG: CYCLOSPORIN
     Route: 048
     Dates: start: 20040804, end: 20040824
  3. HYDROCORTISONE [Suspect]
     Dosage: CAPTURED FROM THE INFORMATION PROVIDED IN THE AE-TEXT
     Route: 042
     Dates: start: 20040919
  4. PREDNISOLONE [Suspect]
     Route: 048
     Dates: start: 20040805
  5. ATORVASTATIN CALCIUM [Concomitant]
     Dosage: DOSE DATE REPORTED AS PRE TX
     Route: 048
  6. CO-TRIMOXAZOLE [Concomitant]
     Route: 042
     Dates: start: 20040811
  7. ASPIRIN [Concomitant]
     Route: 048
     Dates: start: 20040805
  8. AMLODIPINE [Concomitant]
     Route: 048
     Dates: start: 20040804
  9. TAZOCIN [Concomitant]
     Route: 042
     Dates: start: 20040805
  10. DOXAZOSIN MESYLATE [Concomitant]
     Route: 048
     Dates: start: 20040824
  11. FLUCONAZOLE [Concomitant]
     Route: 042
     Dates: start: 20040818, end: 20040902
  12. FLUCONAZOLE [Concomitant]
     Route: 042
     Dates: end: 20040916
  13. HEPARIN [Concomitant]
     Route: 058
     Dates: start: 20040804, end: 20040916
  14. IMIPENEM [Concomitant]
     Route: 042
     Dates: start: 20040820, end: 20040916
  15. INSULIN [Concomitant]
     Dosage: DOSE DATE REPORTED AS PRE TX
     Route: 058
  16. LANSOPRAZOLE [Concomitant]
     Dosage: DRUG: LANZOPRAZOLE
     Route: 048
     Dates: start: 20040816
  17. METRONIDAZOLE [Concomitant]
     Dosage: DOSE REPORTED: 400; NO UNITS PROVIDED
     Route: 048
     Dates: start: 20040818, end: 20040916
  18. VANCOMYCIN [Concomitant]
     Dosage: FORM: VIAL
     Route: 042
     Dates: start: 20040807, end: 20040807

REACTIONS (5)
  - CARDIOGENIC SHOCK [None]
  - GRAFT LOSS [None]
  - MYOCARDIAL INFARCTION [None]
  - PERITONITIS [None]
  - SEPSIS [None]
